FAERS Safety Report 15159166 (Version 2)
Quarter: 2018Q3

REPORT INFORMATION
  Report Type: Spontaneous
  Country: US (occurrence: DE)
  Receive Date: 20180718
  Receipt Date: 20180724
  Transmission Date: 20181010
  Serious: Yes (Hospitalization)
  Sender: FDA-Public Use
  Company Number: US-PFIZER INC-K200900214

PATIENT
  Age: 78 Year
  Sex: Male

DRUGS (7)
  1. BISOPROLOL [Concomitant]
     Active Substance: BISOPROLOL
     Indication: CORONARY ARTERY DISEASE
     Dosage: 2.5 MG, UNK
     Route: 048
     Dates: start: 2001
  2. EBIXA [Concomitant]
     Active Substance: MEMANTINE HYDROCHLORIDE
     Indication: DEMENTIA ALZHEIMER^S TYPE
     Dosage: 10 MG, 2X/DAY
     Route: 048
     Dates: start: 2005
  3. ACETYLSALICYLIC ACID [Concomitant]
     Active Substance: ASPIRIN
     Indication: CORONARY ARTERY DISEASE
     Dosage: 100 MG, UNK
     Route: 048
     Dates: start: 2001
  4. DULCOLAX NOS [Suspect]
     Active Substance: BISACODYL OR DOCUSATE SODIUM
     Indication: CONSTIPATION
     Dosage: 5 MG, 1X/DAY
     Route: 048
     Dates: start: 20080328, end: 20080402
  5. ESOMEPRAZOLE [Concomitant]
     Active Substance: ESOMEPRAZOLE
     Indication: GASTRITIS EROSIVE
     Dosage: 20 MG, UNK
     Route: 048
     Dates: start: 200710
  6. ALTACE [Suspect]
     Active Substance: RAMIPRIL
     Indication: HYPERTENSION
     Dosage: 2.5 MG, 1X/DAY
     Route: 048
     Dates: start: 2001, end: 20080402
  7. RISPERDAL [Concomitant]
     Active Substance: RISPERIDONE
     Indication: DEMENTIA ALZHEIMER^S TYPE
     Dosage: 2.5 MG, UNK
     Route: 048
     Dates: start: 2005

REACTIONS (8)
  - Hypotension [Unknown]
  - Diarrhoea [Recovered/Resolved]
  - Dehydration [Unknown]
  - Heart rate increased [Unknown]
  - Renal failure [Unknown]
  - Hyperkalaemia [Unknown]
  - Coma [Unknown]
  - Syncope [Unknown]

NARRATIVE: CASE EVENT DATE: 20080330
